FAERS Safety Report 14506698 (Version 1)
Quarter: 2018Q1

REPORT INFORMATION
  Report Type: Spontaneous
  Country: AU (occurrence: AU)
  Receive Date: 20180208
  Receipt Date: 20180208
  Transmission Date: 20180509
  Serious: Yes (Other)
  Sender: FDA-Public Use
  Company Number: AU-JNJFOC-20180208691

PATIENT

DRUGS (4)
  1. HALOPERIDOL. [Suspect]
     Active Substance: HALOPERIDOL
     Indication: NAUSEA
     Route: 048
  2. HALOPERIDOL. [Suspect]
     Active Substance: HALOPERIDOL
     Indication: NAUSEA
     Dosage: RANGE OF 0.5-5.0 MG
     Route: 051
  3. HALOPERIDOL. [Suspect]
     Active Substance: HALOPERIDOL
     Indication: VOMITING
     Route: 048
  4. HALOPERIDOL. [Suspect]
     Active Substance: HALOPERIDOL
     Indication: VOMITING
     Dosage: RANGE OF 0.5-5.0 MG
     Route: 051

REACTIONS (9)
  - Muscle rigidity [Unknown]
  - Tremor [Unknown]
  - Urinary retention [Unknown]
  - Somnolence [Unknown]
  - Dizziness [Unknown]
  - Condition aggravated [Unknown]
  - Dry mouth [Unknown]
  - Delirium [Unknown]
  - Constipation [Unknown]
